FAERS Safety Report 4885839-0 (Version None)
Quarter: 2006Q1

REPORT INFORMATION
  Report Type: 
  Country: None (occurrence: None)
  Receive Date: 20060120
  Receipt Date: 20050121
  Transmission Date: 20060701
  Serious: Yes (Other)
  Sender: FDA-Public Use
  Company Number: GB-BRISTOL-MYERS SQUIBB COMPANY-12837837

PATIENT

DRUGS (4)
  1. REYATAZ [Suspect]
     Indication: HIV INFECTION
     Route: 064
     Dates: start: 20040806
  2. RITONAVIR [Concomitant]
     Indication: HIV INFECTION
     Route: 064
     Dates: start: 20040806
  3. TENOFOVIR [Concomitant]
     Indication: HIV INFECTION
     Route: 064
     Dates: start: 20040806
  4. EMTRICITABINE [Concomitant]
     Indication: HIV INFECTION
     Route: 064
     Dates: start: 20040806

REACTIONS (1)
  - PERICARDIAL EFFUSION [None]
